FAERS Safety Report 9699115 (Version 1)
Quarter: 2013Q4

REPORT INFORMATION
  Report Type: Spontaneous
  Country: GB (occurrence: GB)
  Receive Date: 20131120
  Receipt Date: 20131120
  Transmission Date: 20140711
  Serious: Yes (Other)
  Sender: FDA-Public Use
  Company Number: GB-ROCHE-1304351

PATIENT
  Sex: Female

DRUGS (2)
  1. ROACTEMRA [Suspect]
     Indication: JUVENILE IDIOPATHIC ARTHRITIS
     Route: 065
  2. ROACTEMRA [Suspect]
     Indication: BEHCET^S SYNDROME

REACTIONS (3)
  - Epilepsy [Unknown]
  - Arthritis [Unknown]
  - Off label use [Unknown]
